FAERS Safety Report 8054506-7 (Version None)
Quarter: 2012Q1

REPORT INFORMATION
  Report Type: 
  Country: None (occurrence: None)
  Receive Date: 20120118
  Receipt Date: 20120112
  Transmission Date: 20120608
  Serious: Yes (Hospitalization, Other)
  Sender: FDA-Public Use
  Company Number: US-ROCHE-790152

PATIENT
  Sex: Male
  Weight: 63.56 kg

DRUGS (8)
  1. CLARINEX [Concomitant]
     Indication: PRODUCT USED FOR UNKNOWN INDICATION
  2. ALLEGRA [Concomitant]
     Indication: PRODUCT USED FOR UNKNOWN INDICATION
  3. AMITRIPTYLINE HCL [Concomitant]
     Indication: PRODUCT USED FOR UNKNOWN INDICATION
  4. EFFEXOR [Concomitant]
     Indication: PRODUCT USED FOR UNKNOWN INDICATION
  5. ELOCON [Concomitant]
     Indication: PRODUCT USED FOR UNKNOWN INDICATION
  6. ACCUTANE [Suspect]
     Indication: ACNE
     Route: 048
     Dates: start: 19980601, end: 20021001
  7. ZYRTEC [Concomitant]
     Indication: PRODUCT USED FOR UNKNOWN INDICATION
  8. RHINOCORT [Concomitant]
     Indication: PRODUCT USED FOR UNKNOWN INDICATION

REACTIONS (12)
  - DEPRESSION [None]
  - SUICIDAL IDEATION [None]
  - CROHN'S DISEASE [None]
  - INFLAMMATORY BOWEL DISEASE [None]
  - ANAL FISSURE [None]
  - PHOTOSENSITIVITY REACTION [None]
  - DRY SKIN [None]
  - COLITIS ULCERATIVE [None]
  - COLONIC POLYP [None]
  - ANXIETY [None]
  - INTESTINAL HAEMORRHAGE [None]
  - SUICIDE ATTEMPT [None]
